FAERS Safety Report 9397652 (Version 1)
Quarter: 2013Q3

REPORT INFORMATION
  Report Type: Spontaneous
  Country: US (occurrence: None)
  Receive Date: 20130711
  Receipt Date: 20130711
  Transmission Date: 20140515
  Serious: Yes (Disabling)
  Sender: FDA-Public Use
  Company Number: None

PATIENT
  Age: 57 Year
  Sex: Male
  Weight: 88.45 kg

DRUGS (2)
  1. LIPITOR [Suspect]
     Indication: HYPERCHOLESTEROLAEMIA
     Route: 048
     Dates: start: 20130101, end: 20130107
  2. CARBAMAZEPINE ER [Suspect]
     Indication: TRIGEMINAL NEURALGIA
     Route: 048

REACTIONS (2)
  - Malaise [None]
  - Myalgia [None]
